FAERS Safety Report 12812730 (Version 1)
Quarter: 2016Q4

REPORT INFORMATION
  Report Type: Spontaneous
  Country: CH (occurrence: AU)
  Receive Date: 20161005
  Receipt Date: 20161005
  Transmission Date: 20170207
  Serious: Yes (Other)
  Sender: FDA-Public Use
  Company Number: CH-LPDUSPRD-20160866

PATIENT
  Age: 16 Year
  Sex: Female
  Weight: 55 kg

DRUGS (1)
  1. FERINJECT [Suspect]
     Active Substance: FERRIC CARBOXYMALTOSE
     Dosage: 1000 MG, 1 IN 1 TOTAL
     Route: 042
     Dates: start: 20160602, end: 20160603

REACTIONS (6)
  - Back pain [Unknown]
  - Musculoskeletal chest pain [Unknown]
  - Headache [Unknown]
  - Dizziness [Unknown]
  - Fatigue [Unknown]
  - Nausea [Unknown]

NARRATIVE: CASE EVENT DATE: 20160603
